FAERS Safety Report 17258789 (Version 1)
Quarter: 2020Q1

REPORT INFORMATION
  Report Type: Report from Study
  Country: US (occurrence: US)
  Receive Date: 20200110
  Receipt Date: 20200110
  Transmission Date: 20200409
  Serious: Yes (Death, Other)
  Sender: FDA-Public Use
  Company Number: US-BRISTOL-MYERS SQUIBB COMPANY-BMS-2020-001607

PATIENT
  Age: 60 Year
  Sex: Female

DRUGS (2)
  1. NIVOLUMAB [Suspect]
     Active Substance: NIVOLUMAB
     Indication: COLORECTAL CANCER
     Dosage: 480 MILLIGRAM
     Route: 042
     Dates: start: 20190903, end: 20191008
  2. COPANLISIB. [Suspect]
     Active Substance: COPANLISIB
     Indication: COLORECTAL CANCER
     Dosage: 60 MILLIGRAM
     Route: 042
     Dates: start: 20190903, end: 20191008

REACTIONS (1)
  - Sepsis [Fatal]
